FAERS Safety Report 9312410 (Version 3)
Quarter: 2014Q1

REPORT INFORMATION
  Report Type: Report from Study
  Country: US (occurrence: GB)
  Receive Date: 20130528
  Receipt Date: 20140319
  Transmission Date: 20141002
  Serious: Yes (Life-Threatening, Hospitalization)
  Sender: FDA-Public Use
  Company Number: PHHY2013GB051843

PATIENT
  Age: 72 Year
  Sex: Male

DRUGS (12)
  1. ACETYLSALICYLIC ACID [Suspect]
     Indication: PROPHYLAXIS
     Dosage: 75 MG, QD
     Route: 048
     Dates: start: 20120626, end: 20120717
  2. ACETYLSALICYLIC ACID [Suspect]
     Indication: ANTIPLATELET THERAPY
     Dosage: 75 MG, QD
  3. CLOPIDOGREL [Suspect]
     Indication: PROPHYLAXIS
     Dosage: 75 MG, QD
     Route: 048
  4. EPLERENONE [Suspect]
     Indication: ACUTE MYOCARDIAL INFARCTION
     Dosage: 25 MG, QD
     Dates: start: 20120626, end: 20121003
  5. EPLERENONE [Suspect]
     Dosage: 25 MG, BID
     Dates: start: 20120625
  6. ATORVASTATIN [Concomitant]
     Indication: ISCHAEMIC HEART DISEASE PROPHYLAXIS
  7. BISOPROLOL [Concomitant]
     Indication: ISCHAEMIC HEART DISEASE PROPHYLAXIS
  8. FUROSEMIDE [Concomitant]
     Indication: PULMONARY OEDEMA
  9. PERINDOPRIL [Concomitant]
     Indication: ISCHAEMIC HEART DISEASE PROPHYLAXIS
  10. GLYCERYL TRINITRATE [Concomitant]
  11. OMEPRAZOLE [Concomitant]
     Indication: PROPHYLAXIS
  12. FERROUS SULPHATE [Concomitant]
     Indication: BLOOD IRON DECREASED

REACTIONS (1)
  - Anaemia [Unknown]
